FAERS Safety Report 15703341 (Version 1)
Quarter: 2018Q4

REPORT INFORMATION
  Report Type: Spontaneous
  Country: US (occurrence: US)
  Receive Date: 20181127
  Receipt Date: 20181127
  Transmission Date: 20190205
  Serious: Yes (Hospitalization)
  Sender: FDA-Public Use
  Company Number: None

PATIENT
  Age: 74 Year
  Sex: Male
  Weight: 89 kg

DRUGS (1)
  1. RISPERIDONE. [Suspect]
     Active Substance: RISPERIDONE
     Indication: AGITATION
     Route: 048
     Dates: start: 20181111, end: 20181116

REACTIONS (3)
  - Lethargy [None]
  - Angioedema [None]
  - Hypersomnia [None]

NARRATIVE: CASE EVENT DATE: 20181116
